FAERS Safety Report 4662535-6 (Version None)
Quarter: 2005Q2

REPORT INFORMATION
  Report Type: 
  Country: None (occurrence: None)
  Receive Date: 20050512
  Receipt Date: 20050502
  Transmission Date: 20051028
  Serious: Yes (Other)
  Sender: FDA-Public Use
  Company Number: 2003016100

PATIENT
  Age: 59 Year
  Sex: Male

DRUGS (3)
  1. DELTA-CORTEF [Suspect]
     Indication: RENAL TRANSPLANT
  2. CICLOSPROIN (CICLOSPORIN) [Suspect]
     Indication: RENAL TRANSPLANT
  3. AZATHIOPRINE [Suspect]
     Indication: RENAL TRANSPLANT

REACTIONS (4)
  - BASAL CELL CARCINOMA [None]
  - CARCINOID TUMOUR OF THE STOMACH [None]
  - MALIGNANT NEOPLASM OF UTERINE ADNEXA [None]
  - SQUAMOUS CELL CARCINOMA [None]
